FAERS Safety Report 8003449-3 (Version None)
Quarter: 2011Q4

REPORT INFORMATION
  Report Type: 
  Country: None (occurrence: None)
  Receive Date: 20111222
  Receipt Date: 20111222
  Transmission Date: 20120403
  Serious: Yes (Other)
  Sender: FDA-Public Use
  Company Number: None

PATIENT
  Sex: Male
  Weight: 102.05 kg

DRUGS (1)
  1. VICTOZA [Suspect]
     Indication: DIABETES MELLITUS
     Dosage: 1.2 MG
     Route: 058
     Dates: start: 20110901, end: 20111219

REACTIONS (2)
  - PANCREATITIS [None]
  - ABDOMINAL PAIN [None]
